FAERS Safety Report 21941435 (Version 1)
Quarter: 2023Q1

REPORT INFORMATION
  Report Type: Spontaneous
  Country: US (occurrence: US)
  Receive Date: 20230202
  Receipt Date: 20230202
  Transmission Date: 20230418
  Serious: No
  Sender: FDA-Public Use
  Company Number: US-SA-SAC20230130001160

PATIENT
  Sex: Male

DRUGS (3)
  1. DUPIXENT [Suspect]
     Active Substance: DUPILUMAB
     Indication: Dermatitis atopic
     Dosage: 300 MG, QOW
     Route: 065
  2. ROSUVASTATIN [Concomitant]
     Active Substance: ROSUVASTATIN
     Dosage: 10 MG, QD
  3. DIETARY SUPPLEMENT [Concomitant]
     Active Substance: DIETARY SUPPLEMENT
     Dosage: BID

REACTIONS (1)
  - Drug ineffective [Unknown]
